FAERS Safety Report 6412230-8 (Version None)
Quarter: 2009Q4

REPORT INFORMATION
  Report Type: 
  Country: None (occurrence: None)
  Receive Date: 20091023
  Receipt Date: 20091016
  Transmission Date: 20100525
  Serious: Yes (Death, Hospitalization, Other)
  Sender: FDA-Public Use
  Company Number: B0598670A

PATIENT
  Age: 40 Year
  Sex: Female

DRUGS (4)
  1. KIVEXA [Suspect]
     Indication: DRUG USE FOR UNKNOWN INDICATION
     Route: 065
     Dates: start: 20060101
  2. METADON [Suspect]
     Indication: DRUG USE FOR UNKNOWN INDICATION
     Route: 065
  3. ATAZANAVIR [Suspect]
     Indication: DRUG USE FOR UNKNOWN INDICATION
     Dosage: 400MG UNKNOWN
     Route: 065
     Dates: start: 20060101
  4. TRIZIVIR [Concomitant]
     Dosage: 460MG UNKNOWN
     Route: 065

REACTIONS (5)
  - DRUG INTERACTION [None]
  - ELECTROCARDIOGRAM QT PROLONGED [None]
  - HEPATIC FAILURE [None]
  - SYNCOPE [None]
  - TORSADE DE POINTES [None]
